FAERS Safety Report 15123067 (Version 1)
Quarter: 2018Q3

REPORT INFORMATION
  Report Type: Spontaneous
  Country: US (occurrence: US)
  Receive Date: 20180709
  Receipt Date: 20180709
  Transmission Date: 20181010
  Serious: No
  Sender: FDA-Public Use
  Company Number: US-ACTELION-A-NJ2018-174172

PATIENT
  Age: 76 Year
  Sex: Female

DRUGS (1)
  1. VALCHLOR [Suspect]
     Active Substance: MECHLORETHAMINE
     Indication: MYCOSIS FUNGOIDES
     Dosage: UNK
     Route: 061
     Dates: start: 20180430

REACTIONS (8)
  - Pruritus [Unknown]
  - Blister [Unknown]
  - Ocular hyperaemia [Unknown]
  - Erythema [Unknown]
  - Disease progression [Unknown]
  - Eye irritation [Unknown]
  - Skin burning sensation [Unknown]
  - Accidental exposure to product [Unknown]
